FAERS Safety Report 10099886 (Version 1)
Quarter: 2014Q2

REPORT INFORMATION
  Report Type: Spontaneous
  Country: US (occurrence: None)
  Receive Date: 20140422
  Receipt Date: 20140422
  Transmission Date: 20141212
  Serious: No
  Sender: FDA-Public Use
  Company Number: None

PATIENT
  Age: 62 Year
  Sex: Female
  Weight: 81.65 kg

DRUGS (1)
  1. LEVOFLOXACIN [Suspect]
     Indication: SINUSITIS
     Dates: start: 20140310, end: 20140313

REACTIONS (5)
  - Pain in extremity [None]
  - Gait disturbance [None]
  - Tendon pain [None]
  - Arthralgia [None]
  - Joint stiffness [None]
